FAERS Safety Report 4715014-1 (Version None)
Quarter: 2005Q2

REPORT INFORMATION
  Report Type: 
  Country: None (occurrence: None)
  Receive Date: 20050630
  Receipt Date: 20050412
  Transmission Date: 20051028
  Serious: Yes (Other)
  Sender: FDA-Public Use
  Company Number: 211720

PATIENT

DRUGS (1)
  1. AVASTIN [Suspect]

REACTIONS (1)
  - ANGINA PECTORIS [None]
